FAERS Safety Report 10515227 (Version 2)
Quarter: 2014Q4

REPORT INFORMATION
  Report Type: Spontaneous
  Country: JP (occurrence: JP)
  Receive Date: 20141014
  Receipt Date: 20141014
  Transmission Date: 20150528
  Serious: Yes (Other)
  Sender: FDA-Public Use
  Company Number: JP-ORION CORPORATION ORION PHARMA-ENT 2008-0122

PATIENT

DRUGS (3)
  1. LEVODOPA [Concomitant]
     Active Substance: LEVODOPA
     Route: 065
  2. ENTACAPONE. [Suspect]
     Active Substance: ENTACAPONE
     Indication: PARKINSONISM
     Route: 048
  3. SELEGILINE [Suspect]
     Active Substance: SELEGILINE
     Indication: PARKINSONISM
     Route: 065

REACTIONS (2)
  - Delusion [Unknown]
  - Hallucination, visual [Unknown]
